FAERS Safety Report 15864799 (Version 1)
Quarter: 2019Q1

REPORT INFORMATION
  Report Type: Spontaneous
  Country: US (occurrence: US)
  Receive Date: 20190124
  Receipt Date: 20190124
  Transmission Date: 20190417
  Serious: Yes (Hospitalization, Other)
  Sender: FDA-Public Use
  Company Number: US-ENDO PHARMACEUTICALS INC-2018-042467

PATIENT
  Age: 47 Year
  Sex: Male
  Weight: 113.38 kg

DRUGS (6)
  1. FORTESTA [Suspect]
     Active Substance: TESTOSTERONE
     Indication: PRODUCT USED FOR UNKNOWN INDICATION
     Dosage: 10 MG/0.5 GRAM/ACTUATION, 50 MG BY TOPICAL ROUTE DAILY
     Route: 061
  2. AMLODIPINE [Concomitant]
     Active Substance: AMLODIPINE BESYLATE
     Indication: PRODUCT USED FOR UNKNOWN INDICATION
     Dosage: UNK UNKNOWN, DAILY
     Route: 048
  3. LEXAPRO [Concomitant]
     Active Substance: ESCITALOPRAM OXALATE
     Indication: PRODUCT USED FOR UNKNOWN INDICATION
     Dosage: 20 MG, DAILY
     Route: 065
  4. OMEPRAZOLE. [Concomitant]
     Active Substance: OMEPRAZOLE
     Indication: GASTROOESOPHAGEAL REFLUX DISEASE
     Dosage: 40 MG, DAILY
     Route: 048
  5. ASPIRIN                            /00002701/ [Concomitant]
     Active Substance: ASPIRIN
     Indication: PRODUCT USED FOR UNKNOWN INDICATION
     Dosage: 325 MG, DAILY
     Route: 048
  6. LOVASTATIN. [Concomitant]
     Active Substance: LOVASTATIN
     Indication: PRODUCT USED FOR UNKNOWN INDICATION
     Dosage: 40 MG, DAILY
     Route: 048

REACTIONS (10)
  - Rhinorrhoea [Unknown]
  - Overweight [Unknown]
  - Fatigue [Unknown]
  - Asthenia [Unknown]
  - Cough [Unknown]
  - Dyspnoea [Unknown]
  - Hyperhidrosis [Unknown]
  - Feeling hot [Unknown]
  - Acute myocardial infarction [Unknown]
  - Chest discomfort [Unknown]

NARRATIVE: CASE EVENT DATE: 2013
